FAERS Safety Report 4877722-1 (Version None)
Quarter: 2006Q1

REPORT INFORMATION
  Report Type: 
  Country: None (occurrence: None)
  Receive Date: 20060109
  Receipt Date: 20051222
  Transmission Date: 20060701
  Serious: Yes (Hospitalization)
  Sender: FDA-Public Use
  Company Number: 220055

PATIENT
  Age: 63 Year
  Sex: Male

DRUGS (6)
  1. XOLAIR [Suspect]
     Indication: ASTHMA
     Dosage: 150 MG, Q2W, SUBCUTANEOUS
     Route: 058
     Dates: start: 20040301
  2. PRIMATENE MIST [Suspect]
  3. COMBIVENT (ALBUTEROL, ALBUTEROL SULFATE, IPRATROPIUM BROMIDE) [Concomitant]
  4. NASACORT [Concomitant]
  5. DEMADEX [Concomitant]
  6. VITAMINS (VITAMINS NOS) [Concomitant]

REACTIONS (9)
  - ALOPECIA [None]
  - ARTHRALGIA [None]
  - ASTHMA [None]
  - COUGH [None]
  - DRUG HYPERSENSITIVITY [None]
  - INFECTION [None]
  - SINUSITIS [None]
  - SPUTUM DISCOLOURED [None]
  - WEIGHT INCREASED [None]
